FAERS Safety Report 4763425-0 (Version None)
Quarter: 2005Q3

REPORT INFORMATION
  Report Type: 
  Country: None (occurrence: None)
  Receive Date: 20050908
  Receipt Date: 20050905
  Transmission Date: 20060218
  Serious: Yes (Life-Threatening)
  Sender: FDA-Public Use
  Company Number: PHRM2005FR02382

PATIENT
  Age: 38 Year
  Sex: Female

DRUGS (5)
  1. CEFACIDAL [Suspect]
     Dosage: 2 G, ONCE/SINGLE
     Route: 042
     Dates: start: 20050819, end: 20050819
  2. SUFENTANIL CITRATE [Concomitant]
     Indication: CAESAREAN SECTION
     Dosage: UNK, ONCE/SINGLE
     Route: 037
     Dates: start: 20050819, end: 20050819
  3. MARCAINE [Concomitant]
     Indication: CAESAREAN SECTION
     Dosage: UNK, ONCE/SINGLE
     Route: 037
     Dates: start: 20050819, end: 20050819
  4. MORPHINE [Concomitant]
     Indication: CAESAREAN SECTION
     Dosage: UNK, ONCE/SINGLE
     Route: 037
     Dates: start: 20050819, end: 20050819
  5. SYNTOCINON [Suspect]
     Dosage: 1 DF, ONCE/SINGLE
     Route: 042
     Dates: start: 20050819, end: 20050819

REACTIONS (4)
  - ERYTHEMA [None]
  - FACE OEDEMA [None]
  - HYPOTENSION [None]
  - SHOCK [None]
